FAERS Safety Report 10397722 (Version 2)
Quarter: 2014Q3

REPORT INFORMATION
  Report Type: Spontaneous
  Country: SE (occurrence: SE)
  Receive Date: 20140821
  Receipt Date: 20140821
  Transmission Date: 20150326
  Serious: Yes (Other)
  Sender: FDA-Public Use
  Company Number: SE-009507513-1408SWE009193

PATIENT
  Age: 60 Year
  Sex: Female

DRUGS (1)
  1. DIPRODERM [Suspect]
     Active Substance: BETAMETHASONE DIPROPIONATE
     Indication: EAR PRURITUS
     Dosage: IRREGULARLY, WITH A MONTH, SIX MONTHS OR EVEN LONGER PERIODS BETWEEN THE TREATMENTS
     Route: 001

REACTIONS (2)
  - Deafness [Not Recovered/Not Resolved]
  - Expired product administered [Unknown]
